FAERS Safety Report 9074984 (Version 1)
Quarter: 2013Q1

REPORT INFORMATION
  Report Type: Report from Study
  Country: US (occurrence: US)
  Receive Date: 20130131
  Receipt Date: 20130131
  Transmission Date: 20140127
  Serious: No
  Sender: FDA-Public Use
  Company Number: US-ABBOTT-12P-163-1005395-00

PATIENT
  Age: 39 Year
  Sex: Male

DRUGS (7)
  1. HUMIRA [Suspect]
     Indication: CROHN^S DISEASE
     Dosage: LOADING DOSE
     Dates: start: 20121023, end: 20121023
  2. HUMIRA [Suspect]
  3. FENTANYL [Concomitant]
     Indication: PAIN
     Dosage: PATCH
  4. HYDROMORPHONE [Concomitant]
     Indication: PAIN
  5. VALIUM [Concomitant]
     Indication: ANXIETY
  6. GABAPENTIN [Concomitant]
     Indication: ANXIETY
     Dosage: 2-3/DAY
  7. PRILOSEC [Concomitant]
     Indication: DYSPEPSIA

REACTIONS (4)
  - Feeling abnormal [Not Recovered/Not Resolved]
  - Abdominal discomfort [Not Recovered/Not Resolved]
  - Asthenia [Not Recovered/Not Resolved]
  - Constipation [Not Recovered/Not Resolved]
